FAERS Safety Report 11668708 (Version 1)
Quarter: 2015Q4

REPORT INFORMATION
  Report Type: Spontaneous
  Country: US (occurrence: US)
  Receive Date: 20151027
  Receipt Date: 20151027
  Transmission Date: 20160304
  Serious: No
  Sender: FDA-Public Use
  Company Number: US-ELI_LILLY_AND_COMPANY-US201003007410

PATIENT
  Age: 48 Year
  Sex: Female

DRUGS (1)
  1. FORTEO [Suspect]
     Active Substance: TERIPARATIDE
     Dosage: UNK, UNKNOWN

REACTIONS (7)
  - Medication error [Unknown]
  - Urticaria [Unknown]
  - Medication error [Unknown]
  - Erythema [Unknown]
  - Insomnia [Unknown]
  - Malaise [Unknown]
  - Burning sensation [Unknown]

NARRATIVE: CASE EVENT DATE: 201003
